FAERS Safety Report 12224610 (Version 1)
Quarter: 2016Q1

REPORT INFORMATION
  Report Type: Report from Study
  Country: TW (occurrence: TW)
  Receive Date: 20160331
  Receipt Date: 20160331
  Transmission Date: 20160526
  Serious: Yes (Hospitalization)
  Sender: FDA-Public Use
  Company Number: TW-UNITED THERAPEUTICS-UNT-2016-000002

PATIENT
  Age: 49 Year
  Sex: Female
  Weight: 42.9 kg

DRUGS (10)
  1. UT-15C SR [Suspect]
     Active Substance: TREPROSTINIL DIOLAMINE
     Dosage: UNK
     Route: 048
     Dates: start: 20150902
  2. ALDACTONE [Concomitant]
     Active Substance: SPIRONOLACTONE
     Indication: OEDEMA
     Dosage: 50 MG, TOTAL DAILY DOSE
     Dates: start: 20151223
  3. MELETIN [Concomitant]
     Indication: ARRHYTHMIA
     Dosage: 200 MG, TOTAL DAILY DOSE
     Dates: start: 20150819
  4. CORDARONE [Concomitant]
     Active Substance: AMIODARONE HYDROCHLORIDE
     Indication: ARRHYTHMIA
     Dosage: 300 MG, TOTAL DAILY DOSE
     Dates: start: 20151223
  5. COUMADIN [Concomitant]
     Active Substance: WARFARIN SODIUM
     Indication: PULMONARY ARTERIAL HYPERTENSION
     Dosage: 0.5 MG, TOTAL DAILY DOSE
     Dates: start: 20131218
  6. UT-15C SR [Suspect]
     Active Substance: TREPROSTINIL DIOLAMINE
     Indication: PULMONARY ARTERIAL HYPERTENSION
     Dosage: 3 MG, TOTAL DAILY DOSE
     Route: 048
     Dates: start: 20151022, end: 20160102
  7. LASIX [Concomitant]
     Active Substance: FUROSEMIDE
     Indication: OEDEMA
     Dosage: 40 MG, TOTAL DAILY DOSE
     Dates: start: 20150819
  8. REVATIO [Concomitant]
     Active Substance: SILDENAFIL CITRATE
     Indication: PULMONARY ARTERIAL HYPERTENSION
     Dosage: 60 MG, TOTAL DAILY DOSE
     Dates: start: 20131204
  9. ALPRALINE [Concomitant]
     Active Substance: ALPRAZOLAM
     Indication: ANXIETY
     Dosage: 0.5 MG, TOTAL DAILY DOSE
     Dates: start: 20131204
  10. FLUITRAN [Concomitant]
     Active Substance: TRICHLORMETHIAZIDE
     Indication: OEDEMA
     Dosage: 2 MG, TOTAL DAILY DOSE
     Dates: start: 20151223

REACTIONS (2)
  - Malaise [Recovered/Resolved]
  - Headache [Recovered/Resolved]

NARRATIVE: CASE EVENT DATE: 20151225
